FAERS Safety Report 5912166-2 (Version None)
Quarter: 2008Q4

REPORT INFORMATION
  Report Type: 
  Country: None (occurrence: None)
  Receive Date: 20081003
  Receipt Date: 20081003
  Transmission Date: 20090506
  Serious: Yes (Hospitalization, Other)
  Sender: FDA-Public Use
  Company Number: None

PATIENT
  Age: 49 Year
  Sex: Female
  Weight: 81.6475 kg

DRUGS (1)
  1. RECLAST [Suspect]
     Dosage: INJECTION YEARLY
     Dates: start: 20000707, end: 20080707

REACTIONS (3)
  - ARTHRALGIA [None]
  - MYALGIA [None]
  - NO THERAPEUTIC RESPONSE [None]
